FAERS Safety Report 16048210 (Version 1)
Quarter: 2019Q1

REPORT INFORMATION
  Report Type: Spontaneous
  Country: GB (occurrence: GB)
  Receive Date: 20190307
  Receipt Date: 20190307
  Transmission Date: 20190418
  Serious: Yes (Other)
  Sender: FDA-Public Use
  Company Number: GB-TEVA-2019-GB-1020115

PATIENT
  Age: 43 Year

DRUGS (2)
  1. TEICOPLANIN [Suspect]
     Active Substance: TEICOPLANIN
     Dates: start: 20181012
  2. LINEZOLID. [Suspect]
     Active Substance: LINEZOLID
     Dosage: STAT DOSE
     Dates: start: 20181012

REACTIONS (4)
  - Pruritus [Unknown]
  - Catheter site erythema [Unknown]
  - Chest discomfort [Unknown]
  - Wheezing [Unknown]

NARRATIVE: CASE EVENT DATE: 20181012
